FAERS Safety Report 4451356-5 (Version None)
Quarter: 2004Q3

REPORT INFORMATION
  Report Type: 
  Country: None (occurrence: None)
  Receive Date: 20040916
  Receipt Date: 20040907
  Transmission Date: 20050211
  Serious: Yes (Other)
  Sender: FDA-Public Use
  Company Number: JP-MERCK-0409USA00584

PATIENT
  Age: 70 Year
  Sex: Male

DRUGS (3)
  1. FOSAMAX [Suspect]
     Indication: OSTEOPOROSIS
     Route: 048
     Dates: start: 20040823, end: 20040826
  2. TAKEPRON [Concomitant]
     Indication: GASTRIC ULCER
     Route: 048
     Dates: start: 20040816
  3. PREDONINE [Concomitant]
     Indication: SARCOIDOSIS
     Route: 065
     Dates: start: 20040816

REACTIONS (1)
  - EXANTHEM [None]
